FAERS Safety Report 14686265 (Version 1)
Quarter: 2018Q1

REPORT INFORMATION
  Report Type: Spontaneous
  Country: US (occurrence: US)
  Receive Date: 20180326
  Receipt Date: 20180326
  Transmission Date: 20180509
  Serious: No
  Sender: FDA-Public Use
  Company Number: None

PATIENT
  Age: 80 Year
  Sex: Male

DRUGS (7)
  1. ONDANSETRON [Concomitant]
     Active Substance: ONDANSETRON
  2. LONSURF [Suspect]
     Active Substance: TIPIRACIL HYDROCHLORIDE\TRIFLURIDINE
     Indication: COLON CANCER
     Route: 048
     Dates: start: 20180302
  3. BETAMETHASONE. [Concomitant]
     Active Substance: BETAMETHASONE
  4. BUPRENORPHINE. [Concomitant]
     Active Substance: BUPRENORPHINE
  5. DRONABINOL. [Concomitant]
     Active Substance: DRONABINOL
  6. LOSARTAN. [Concomitant]
     Active Substance: LOSARTAN
  7. FINASTERIDE. [Concomitant]
     Active Substance: FINASTERIDE

REACTIONS (1)
  - Haemoptysis [None]

NARRATIVE: CASE EVENT DATE: 20180326
